FAERS Safety Report 8600719 (Version 3)
Quarter: 2013Q1

REPORT INFORMATION
  Report Type: Report from Study
  Country: CA (occurrence: CA)
  Receive Date: 20120606
  Receipt Date: 20130315
  Transmission Date: 20140127
  Serious: Yes (Hospitalization)
  Sender: FDA-Public Use
  Company Number: CA-ABBOTT-12P-028-0940473-00

PATIENT
  Age: 59 Year
  Sex: Male

DRUGS (4)
  1. HUMIRA [Suspect]
     Indication: PSORIASIS
     Route: 058
     Dates: start: 20100129, end: 20111222
  2. HUMIRA [Suspect]
     Route: 058
     Dates: start: 20120221
  3. CELEBREX [Concomitant]
     Indication: ARTHRITIS
     Dosage: QD, PRN
     Dates: start: 200908
  4. APO-PROPRANOLOL [Concomitant]
     Indication: ESSENTIAL TREMOR
     Dates: start: 20100216

REACTIONS (1)
  - Skin ulcer [Recovered/Resolved]
